FAERS Safety Report 9113846 (Version 1)
Quarter: 2013Q1

REPORT INFORMATION
  Report Type: Spontaneous
  Country: FR (occurrence: FR)
  Receive Date: 20130208
  Receipt Date: 20130208
  Transmission Date: 20140127
  Serious: Yes (Hospitalization)
  Sender: FDA-Public Use
  Company Number: FR-PFIZER INC-2013045860

PATIENT
  Age: 27 Year
  Sex: Female

DRUGS (7)
  1. ZITHROMAX [Suspect]
     Dosage: UNK
     Dates: start: 2012
  2. DOSTINEX [Suspect]
     Dosage: UNK
     Dates: start: 2012
  3. GONAL-F [Suspect]
     Dosage: UNK
     Dates: start: 2012
  4. OVITRELLE [Suspect]
     Dosage: UNK
     Dates: start: 2012
  5. DECAPEPTYL [Suspect]
     Dosage: UNK
     Dates: start: 2012
  6. UTROGESTAN [Suspect]
     Dosage: UNK
     Dates: start: 2012
  7. EFFERALGAN CODEINE [Suspect]
     Dosage: UNK
     Dates: start: 2012

REACTIONS (1)
  - Pancreatitis acute [Recovered/Resolved]
